FAERS Safety Report 14608331 (Version 1)
Quarter: 2018Q1

REPORT INFORMATION
  Report Type: Spontaneous
  Country: NL (occurrence: NL)
  Receive Date: 20180307
  Receipt Date: 20180307
  Transmission Date: 20180509
  Serious: Yes (Other)
  Sender: FDA-Public Use
  Company Number: NL-TEVA-2018-NL-863565

PATIENT
  Sex: Male
  Weight: 4 kg

DRUGS (1)
  1. DOXYCYCLINE DISPER TABLET, 100 MG (MILLIGRAM) [Suspect]
     Active Substance: DOXYCYCLINE
     Indication: ACNE
     Dosage: 1X DAILY 1 TABLET
     Dates: start: 20170314, end: 20170324

REACTIONS (1)
  - Tooth injury [Not Recovered/Not Resolved]
